FAERS Safety Report 24818224 (Version 1)
Quarter: 2025Q1

REPORT INFORMATION
  Report Type: Report from Study
  Country: CA (occurrence: None)
  Receive Date: 20250108
  Receipt Date: 20250108
  Transmission Date: 20250409
  Serious: Yes (Other)
  Sender: ORION
  Company Number: CA-PFIZER INC-2020315193

PATIENT
  Age: 56 Year
  Sex: Female

DRUGS (13)
  1. METHOTREXATE [Suspect]
     Active Substance: METHOTREXATE
     Indication: Product used for unknown indication
  2. METHOTREXATE [Suspect]
     Active Substance: METHOTREXATE
  3. BISOPROLOL [Suspect]
     Active Substance: BISOPROLOL
     Indication: Product used for unknown indication
  4. ERELZI [Suspect]
     Active Substance: ETANERCEPT-SZZS
     Indication: Rheumatoid arthritis
  5. LEFLUNOMIDE [Suspect]
     Active Substance: LEFLUNOMIDE
     Indication: Product used for unknown indication
  6. LEFLUNOMIDE [Suspect]
     Active Substance: LEFLUNOMIDE
  7. ARAVA [Concomitant]
     Active Substance: LEFLUNOMIDE
  8. CELEBREX [Concomitant]
     Active Substance: CELECOXIB
  9. DESOXIMETASONE [Concomitant]
     Active Substance: DESOXIMETASONE
  10. FOLIC ACID [Concomitant]
     Active Substance: FOLIC ACID
  11. IBUPROFEN [Concomitant]
     Active Substance: IBUPROFEN
  12. NAPROXEN [Concomitant]
     Active Substance: NAPROXEN
  13. TYLENOL [Concomitant]
     Active Substance: ACETAMINOPHEN

REACTIONS (18)
  - Therapeutic response decreased [Recovering/Resolving]
  - Pain in extremity [Recovering/Resolving]
  - Musculoskeletal stiffness [Recovering/Resolving]
  - Alanine aminotransferase increased [Recovering/Resolving]
  - Hepatic enzyme increased [Recovering/Resolving]
  - Hepatic function abnormal [Recovering/Resolving]
  - Liver function test increased [Recovering/Resolving]
  - Arthropathy [Recovering/Resolving]
  - Dry eye [Recovering/Resolving]
  - Dry mouth [Recovering/Resolving]
  - Finger deformity [Recovering/Resolving]
  - General physical health deterioration [Recovering/Resolving]
  - Hand deformity [Recovering/Resolving]
  - Joint stiffness [Recovering/Resolving]
  - Joint swelling [Recovering/Resolving]
  - Night sweats [Recovering/Resolving]
  - Pain [Recovering/Resolving]
  - Peripheral swelling [Recovering/Resolving]
